FAERS Safety Report 8965526 (Version 1)
Quarter: 2012Q4

REPORT INFORMATION
  Report Type: Spontaneous
  Country: US (occurrence: None)
  Receive Date: 20121212
  Receipt Date: 20121212
  Transmission Date: 20130627
  Serious: Yes (Disabling)
  Sender: FDA-Public Use
  Company Number: None

PATIENT
  Age: 46 Year
  Sex: Male
  Weight: 104.33 kg

DRUGS (1)
  1. LEVOFLOXACIN [Suspect]
     Dates: start: 20040124, end: 20040224

REACTIONS (4)
  - Rotator cuff syndrome [None]
  - Fall [None]
  - Tendonitis [None]
  - Exostosis [None]
